FAERS Safety Report 9629294 (Version 1)
Quarter: 2013Q4

REPORT INFORMATION
  Report Type: Spontaneous
  Country: US (occurrence: US)
  Receive Date: 20131017
  Receipt Date: 20131017
  Transmission Date: 20140711
  Serious: No
  Sender: FDA-Public Use
  Company Number: US-ASTRAZENECA-2013SE65715

PATIENT
  Age: 68 Year
  Sex: Female
  Weight: 81.6 kg

DRUGS (5)
  1. CRESTOR [Suspect]
     Indication: BLOOD CHOLESTEROL ABNORMAL
     Route: 048
     Dates: end: 20130715
  2. SYNTHROID [Concomitant]
     Dosage: 125MCG UNK
  3. OXYBUTININ [Concomitant]
  4. LIPITOR [Concomitant]
  5. PRAVACHOL [Concomitant]

REACTIONS (6)
  - Cardiac stress test abnormal [Unknown]
  - Tendonitis [Recovering/Resolving]
  - Gastrooesophageal reflux disease [Recovering/Resolving]
  - Weight increased [Unknown]
  - Muscle disorder [Recovering/Resolving]
  - Off label use [Unknown]
